FAERS Safety Report 9463153 (Version 1)
Quarter: 2013Q3

REPORT INFORMATION
  Report Type: Spontaneous
  Country: FR (occurrence: FR)
  Receive Date: 20130818
  Receipt Date: 20130818
  Transmission Date: 20140515
  Serious: Yes (Other)
  Sender: FDA-Public Use
  Company Number: FR-AMGEN-FRASP2013057611

PATIENT
  Age: 64 Year
  Sex: Female

DRUGS (4)
  1. ENBREL [Suspect]
     Indication: RHEUMATOID ARTHRITIS
     Dosage: 50 MG, WEEKLY
     Route: 058
     Dates: start: 20101203
  2. NOVATREX /00113801/ [Suspect]
     Indication: RHEUMATOID ARTHRITIS
     Dosage: 10 MG, WEEKLY
     Route: 048
  3. CORTANCYL [Concomitant]
     Dosage: 3.5 MG DAILY
     Route: 048
  4. TAREG [Concomitant]
     Dosage: UNK UNK, UNK

REACTIONS (3)
  - Amaurosis [Recovered/Resolved]
  - Retinopathy hypertensive [Unknown]
  - Retinal vascular thrombosis [Unknown]
